FAERS Safety Report 24270926 (Version 1)
Quarter: 2024Q3

REPORT INFORMATION
  Report Type: Spontaneous
  Country: US (occurrence: US)
  Receive Date: 20240831
  Receipt Date: 20240831
  Transmission Date: 20241017
  Serious: Yes (Hospitalization)
  Sender: AMNEAL
  Company Number: US-AMNEAL PHARMACEUTICALS-2024-AMRX-03116

PATIENT
  Age: 39 Year
  Sex: Female
  Weight: 93.515 kg

DRUGS (7)
  1. ACTIVELLA [Suspect]
     Active Substance: ESTRADIOL\NORETHINDRONE ACETATE
     Indication: Uterine leiomyoma
     Dosage: 1.0MG /0.5MG, EVERY 1 DAYS
     Route: 048
     Dates: start: 20190313, end: 20200211
  2. ACTIVELLA [Suspect]
     Active Substance: ESTRADIOL\NORETHINDRONE ACETATE
     Dosage: 1.0MG /0.5MG, EVERY 1 DAYS
     Route: 048
     Dates: start: 20200212, end: 20201222
  3. ELAGOLIX [Suspect]
     Active Substance: ELAGOLIX
     Indication: Uterine leiomyoma
     Dosage: 300 MG, EVERY 1 DAYS
     Route: 048
     Dates: start: 20190313, end: 20200211
  4. ELAGOLIX [Suspect]
     Active Substance: ELAGOLIX
     Dosage: 300 MG PM DOSE, EVERY 1 DAYS
     Route: 048
     Dates: start: 20200212, end: 20201222
  5. IRON [Concomitant]
     Active Substance: IRON
     Indication: Anaemia
     Dosage: 65 MILLIGRAM, DAILY
     Route: 065
     Dates: start: 20180912
  6. VITAMIN D3 [Concomitant]
     Active Substance: CHOLECALCIFEROL
     Indication: Vitamin D deficiency
     Dosage: 2000 INTERNATIONAL UNIT, DAILY
     Route: 065
     Dates: start: 20180912
  7. METFORMIN [Concomitant]
     Active Substance: METFORMIN HYDROCHLORIDE
     Indication: Type 2 diabetes mellitus
     Dosage: 1000 MG/KG, EVERY 1 DAYS
     Route: 065
     Dates: start: 201905

REACTIONS (2)
  - Road traffic accident [Not Recovered/Not Resolved]
  - Rib fracture [Not Recovered/Not Resolved]

NARRATIVE: CASE EVENT DATE: 20200221
